FAERS Safety Report 25904088 (Version 1)
Quarter: 2025Q4

REPORT INFORMATION
  Report Type: Spontaneous
  Country: US (occurrence: US)
  Receive Date: 20251010
  Receipt Date: 20251010
  Transmission Date: 20260117
  Serious: No
  Sender: Kenvue
  Company Number: US-KENVUE-20250910667

PATIENT
  Sex: Female

DRUGS (1)
  1. TYLENOL [Suspect]
     Active Substance: ACETAMINOPHEN
     Indication: Cartilage injury
     Dosage: 6 DOSAGE FORM (AT LEAST 6 TYLENOL A DAY)
     Route: 065

REACTIONS (1)
  - Exposure during pregnancy [Unknown]
